FAERS Safety Report 4340514-6 (Version None)
Quarter: 2004Q2

REPORT INFORMATION
  Report Type: 
  Country: None (occurrence: None)
  Receive Date: 20040414
  Receipt Date: 20040402
  Transmission Date: 20050107
  Serious: Yes (Death)
  Sender: FDA-Public Use
  Company Number: 2004019376

PATIENT
  Age: 61 Year
  Sex: Male

DRUGS (6)
  1. NORVASC [Suspect]
     Indication: HYPERTENSION
     Dosage: 10 MG (DAILY), ORAL
     Route: 048
     Dates: start: 20031001, end: 20040329
  2. PHENYTOIN [Suspect]
     Indication: EPILEPSY
     Dosage: 300 MG (DAILY), ORAL
     Route: 048
     Dates: start: 20031001, end: 20040329
  3. DOXAZOSIN MESYLATE [Concomitant]
  4. TEMOCAPRIL HYDROCHLORIDE (TEMOCAORIL HYDROCHLORIDE) [Concomitant]
  5. NITRAZEPAM [Concomitant]
  6. ACETYLSALICYLIC ACID SRT [Concomitant]

REACTIONS (11)
  - ACUTE MYOCARDIAL INFARCTION [None]
  - ATHEROSCLEROSIS [None]
  - BLOOD PRESSURE INCREASED [None]
  - CONVULSION [None]
  - CORONARY ARTERY STENOSIS [None]
  - DISEASE PROGRESSION [None]
  - DRUG EFFECT DECREASED [None]
  - DRUG INTERACTION [None]
  - DYSLALIA [None]
  - DYSPHAGIA [None]
  - GAIT DISTURBANCE [None]
